FAERS Safety Report 14650538 (Version 3)
Quarter: 2018Q3

REPORT INFORMATION
  Report Type: Spontaneous
  Country: US (occurrence: US)
  Receive Date: 20180316
  Receipt Date: 20180814
  Transmission Date: 20181010
  Serious: No
  Sender: FDA-Public Use
  Company Number: US-CELLTRION INC.-2017US010782

PATIENT

DRUGS (6)
  1. INFLECTRA [Suspect]
     Active Substance: INFLIXIMAB-DYYB
     Dosage: 300 MG CYCLIC; (Q 6 WEEKS)
     Route: 065
     Dates: start: 20180523, end: 20180523
  2. INFLECTRA [Suspect]
     Active Substance: INFLIXIMAB-DYYB
     Dosage: 300 MG (Q 6 WEEKS)
     Route: 065
     Dates: start: 20180702, end: 20180702
  3. INFLECTRA [Suspect]
     Active Substance: INFLIXIMAB-DYYB
     Dosage: 300 MG UNK; (EVERY 6 WEEKS)(Q 6 WEEKS)
     Route: 065
     Dates: start: 20171120, end: 20171120
  4. INFLECTRA [Suspect]
     Active Substance: INFLIXIMAB-DYYB
     Dosage: 300 MG CYCLIC; (EVERY 6 WEEKS)
     Route: 065
     Dates: start: 20180404, end: 20180404
  5. INFLECTRA [Suspect]
     Active Substance: INFLIXIMAB-DYYB
     Dosage: 300 MG UNK; (EVERY 6 WEEKS)(Q 6 WEEKS)
     Route: 065
     Dates: start: 20180206, end: 20180206
  6. INFLECTRA [Suspect]
     Active Substance: INFLIXIMAB-DYYB
     Indication: COLITIS ULCERATIVE
     Dosage: 300 MG CYCLIC; (EVERY 6 WEEKS)(Q 6 WEEKS)
     Route: 065
     Dates: start: 20170819, end: 20170819

REACTIONS (4)
  - Incorrect dose administered [Unknown]
  - Drug dose omission [Unknown]
  - Drug prescribing error [Unknown]
  - Inappropriate schedule of drug administration [Unknown]
